FAERS Safety Report 5458055-1 (Version None)
Quarter: 2007Q3

REPORT INFORMATION
  Report Type: 
  Country: None (occurrence: None)
  Receive Date: 20070919
  Receipt Date: 20070914
  Transmission Date: 20080115
  Serious: Yes (Death, Life-Threatening)
  Sender: FDA-Public Use
  Company Number: PHHO2007DE09111

PATIENT

DRUGS (1)
  1. GLEEVEC [Suspect]
     Indication: BILE DUCT CANCER

REACTIONS (5)
  - ASCITES [None]
  - FLUID RETENTION [None]
  - GENERALISED OEDEMA [None]
  - OEDEMA PERIPHERAL [None]
  - PLEURAL EFFUSION [None]
